FAERS Safety Report 17581348 (Version 13)
Quarter: 2021Q2

REPORT INFORMATION
  Report Type: Report from Study
  Country: BR (occurrence: BR)
  Receive Date: 20200325
  Receipt Date: 20210617
  Transmission Date: 20210716
  Serious: Yes (Hospitalization, Other)
  Sender: FDA-Public Use
  Company Number: PHHY2019BR226182

PATIENT
  Age: 39 Year
  Sex: Female
  Weight: 63 kg

DRUGS (14)
  1. INTERFERON BETA?1B [Suspect]
     Active Substance: INTERFERON BETA-1B
     Dosage: 44 MG, (MONDAY, WEDNESDAY AND FRIDAY) STOPPED ON 02 SEP 2020 OR 09 SEP 2020, ROUTE ARM, BELLY AND BU
     Route: 065
     Dates: start: 20190821
  2. DIENOGEST [Concomitant]
     Active Substance: DIENOGEST
     Dosage: 1 DF, QD, STARTED 1 YEAR AND 1 MONTH AGO
     Route: 048
  3. INTERFERON BETA?1B [Suspect]
     Active Substance: INTERFERON BETA-1B
     Indication: MULTIPLE SCLEROSIS
     Dosage: UNK
     Route: 065
     Dates: start: 201805
  4. RITALIN [Suspect]
     Active Substance: METHYLPHENIDATE HYDROCHLORIDE
     Indication: PRODUCT USED FOR UNKNOWN INDICATION
     Dosage: UNK
     Route: 065
  5. COLLAGEN [Concomitant]
     Active Substance: COLLAGEN
     Indication: PRODUCT USED FOR UNKNOWN INDICATION
     Dosage: 1 DF, QD (STARTED 15 DAYS AGO)
     Route: 048
  6. GILENYA [Suspect]
     Active Substance: FINGOLIMOD HYDROCHLORIDE
     Dosage: UNK
     Route: 065
     Dates: start: 20190916
  7. OMEGA 3 [Concomitant]
     Active Substance: OMEGA-3 FATTY ACIDS
     Indication: PRODUCT USED FOR UNKNOWN INDICATION
     Dosage: UNK
     Route: 065
  8. GILENYA [Suspect]
     Active Substance: FINGOLIMOD HYDROCHLORIDE
     Dosage: UNK
     Route: 048
  9. DIENOGEST [Concomitant]
     Active Substance: DIENOGEST
     Indication: MENSTRUAL DISORDER
     Dosage: 2 MG, QD, START 1 YEAR AGO, NOT TO MENSTRUATE (DUE TO MYOMA AND CYST)
     Route: 048
  10. GILENYA [Suspect]
     Active Substance: FINGOLIMOD HYDROCHLORIDE
     Indication: MULTIPLE SCLEROSIS
     Dosage: 0.5 MG, QD
     Route: 048
     Dates: start: 20190916
  11. GILENYA [Suspect]
     Active Substance: FINGOLIMOD HYDROCHLORIDE
     Dosage: 0.5 MG, QD
     Route: 048
     Dates: start: 20190916
  12. FLANCOX [Concomitant]
     Active Substance: ETODOLAC
     Indication: INFLAMMATION
     Dosage: 400 MG, Q12H, USED FOR APPROXIMATELY 1 WEEK
     Route: 048
     Dates: start: 20200920
  13. GILENYA [Suspect]
     Active Substance: FINGOLIMOD HYDROCHLORIDE
     Dosage: UNK
     Route: 048
  14. GILENYA [Suspect]
     Active Substance: FINGOLIMOD HYDROCHLORIDE
     Dosage: 0.5 MG, QD
     Route: 048
     Dates: start: 20190916

REACTIONS (50)
  - Tendonitis [Unknown]
  - Limb discomfort [Unknown]
  - Pain [Not Recovered/Not Resolved]
  - Arthralgia [Not Recovered/Not Resolved]
  - Headache [Not Recovered/Not Resolved]
  - Somnolence [Not Recovered/Not Resolved]
  - Hypoaesthesia [Recovered/Resolved]
  - Spinal cord injury [Unknown]
  - Joint swelling [Not Recovered/Not Resolved]
  - Nervousness [Unknown]
  - Agitation [Unknown]
  - Visual impairment [Unknown]
  - Hypoacusis [Unknown]
  - Concomitant disease aggravated [Recovering/Resolving]
  - Hypersensitivity [Unknown]
  - Pruritus [Not Recovered/Not Resolved]
  - Multiple sclerosis [Not Recovered/Not Resolved]
  - Bone swelling [Not Recovered/Not Resolved]
  - Dizziness [Not Recovered/Not Resolved]
  - Sinusitis [Unknown]
  - Pain in extremity [Recovering/Resolving]
  - Head discomfort [Unknown]
  - Peripheral swelling [Not Recovered/Not Resolved]
  - Skin discolouration [Unknown]
  - Fear [Unknown]
  - Bone pain [Recovering/Resolving]
  - Movement disorder [Recovered/Resolved]
  - Memory impairment [Unknown]
  - Speech disorder [Unknown]
  - Chest pain [Unknown]
  - Headache [Recovered/Resolved]
  - Arthropathy [Not Recovered/Not Resolved]
  - Gait disturbance [Recovering/Resolving]
  - Asthenia [Recovering/Resolving]
  - Skin disorder [Not Recovered/Not Resolved]
  - Hemiparesis [Unknown]
  - Tenosynovitis [Recovering/Resolving]
  - Multiple sclerosis relapse [Recovered/Resolved]
  - Multiple sclerosis relapse [Recovered/Resolved]
  - Nausea [Not Recovered/Not Resolved]
  - Acne [Unknown]
  - Tremor [Unknown]
  - Mass [Unknown]
  - Insomnia [Unknown]
  - Central nervous system lesion [Not Recovered/Not Resolved]
  - Constipation [Unknown]
  - Paraesthesia [Unknown]
  - Ageusia [Unknown]
  - Heart rate increased [Unknown]
  - Haematoma [Not Recovered/Not Resolved]

NARRATIVE: CASE EVENT DATE: 2019
